FAERS Safety Report 13314593 (Version 3)
Quarter: 2017Q4

REPORT INFORMATION
  Report Type: Report from Study
  Country: JP (occurrence: JP)
  Receive Date: 20170308
  Receipt Date: 20171222
  Transmission Date: 20180320
  Serious: Yes (Hospitalization, Other)
  Sender: FDA-Public Use
  Company Number: JP-ASTRAZENECA-2016SF36112

PATIENT
  Age: 44 Year
  Sex: Female
  Weight: 53 kg

DRUGS (22)
  1. TAGRISSO [Suspect]
     Active Substance: OSIMERTINIB
     Indication: NON-SMALL CELL LUNG CANCER
     Route: 048
     Dates: start: 20160922, end: 20161218
  2. LYRICA [Concomitant]
     Active Substance: PREGABALIN
     Indication: CHEST PAIN
     Route: 048
     Dates: end: 20161006
  3. CALONAL [Concomitant]
     Active Substance: ACETAMINOPHEN
     Indication: PYREXIA
     Route: 048
  4. BETAMETHASONE. [Suspect]
     Active Substance: BETAMETHASONE
     Indication: BRAIN OEDEMA
     Route: 048
     Dates: start: 20160909, end: 20161007
  5. BETAMETHASONE. [Suspect]
     Active Substance: BETAMETHASONE
     Indication: BRAIN OEDEMA
     Dosage: PERORAL MEDICINE
     Route: 048
     Dates: start: 20161012, end: 20161014
  6. FAMOTIDINE D [Concomitant]
     Active Substance: FAMOTIDINE
     Indication: CHRONIC GASTRITIS
     Route: 048
  7. TSUMURA HOCHUEKKITO EXTRACT GRANULES FOR ETHICAL USE [Concomitant]
     Indication: DECREASED APPETITE
     Dosage: GRANULATED POWDER
     Route: 048
     Dates: end: 20161006
  8. LYRICA [Concomitant]
     Active Substance: PREGABALIN
     Indication: CHEST PAIN
     Route: 048
     Dates: start: 20161007, end: 20161013
  9. QUETIAPINE. [Concomitant]
     Active Substance: QUETIAPINE
     Indication: INSOMNIA
     Dates: end: 20161006
  10. MIYA-BM [Concomitant]
     Active Substance: CLOSTRIDIUM BUTYRICUM SPORES STRAIN M-55
     Indication: PROPHYLAXIS AGAINST DIARRHOEA
     Route: 048
  11. TSUMURA HOCHUEKKITO EXTRACT GRANULES FOR ETHICAL USE [Concomitant]
     Indication: DECREASED APPETITE
     Dosage: GRANULATED POWDER
     Route: 048
     Dates: end: 20161006
  12. DENOTAS [Concomitant]
     Active Substance: CALCIUM CARBONATE\CHOLECALCIFEROL\MAGNESIUM CARBONATE
     Dosage: 2 DOSAGE FORM DAILY
     Route: 048
     Dates: start: 20161014, end: 20161215
  13. BAKTAR [Concomitant]
     Active Substance: SULFAMETHOXAZOLE\TRIMETHOPRIM
     Dosage: S400MG+T80MG
     Route: 048
  14. CALCIUM LACTATE [Concomitant]
     Active Substance: CALCIUM LACTATE
     Route: 048
  15. MAGNESIUM OXIDE. [Concomitant]
     Active Substance: MAGNESIUM OXIDE
     Indication: CONSTIPATION PROPHYLAXIS
     Route: 048
  16. BETAMETHASONE. [Suspect]
     Active Substance: BETAMETHASONE
     Indication: BRAIN OEDEMA
     Dosage: PERORAL MEDICINE
     Route: 048
     Dates: start: 20161008, end: 20161011
  17. BETAMETHASONE. [Suspect]
     Active Substance: BETAMETHASONE
     Indication: BRAIN OEDEMA
     Dosage: PERORAL MEDICINE
     Route: 048
     Dates: start: 20161015, end: 20161018
  18. TAGRISSO [Suspect]
     Active Substance: OSIMERTINIB
     Indication: NON-SMALL CELL LUNG CANCER
     Route: 048
     Dates: start: 20170111, end: 20171108
  19. EDIROL [Concomitant]
     Active Substance: ELDECALCITOL
     Route: 048
  20. AMOBAN [Concomitant]
     Active Substance: ZOPICLONE
     Indication: INSOMNIA
     Dates: end: 20161006
  21. MYONAL [Suspect]
     Active Substance: EPERISONE HYDROCHLORIDE
     Indication: TEMPOROMANDIBULAR JOINT SYNDROME
     Route: 065
     Dates: start: 20161111, end: 20161125
  22. LYRICA [Concomitant]
     Active Substance: PREGABALIN
     Indication: CHEST PAIN
     Route: 048
     Dates: start: 20161014

REACTIONS (5)
  - Drug-induced liver injury [Recovering/Resolving]
  - Lung disorder [Recovering/Resolving]
  - Pyrexia [Recovering/Resolving]
  - Temporomandibular joint syndrome [Recovering/Resolving]
  - Diarrhoea [Recovering/Resolving]

NARRATIVE: CASE EVENT DATE: 20161017
